FAERS Safety Report 12418871 (Version 3)
Quarter: 2016Q2

REPORT INFORMATION
  Report Type: Report from Study
  Country: US (occurrence: US)
  Receive Date: 20160531
  Receipt Date: 20160630
  Transmission Date: 20160815
  Serious: Yes (Other)
  Sender: FDA-Public Use
  Company Number: US-AMGEN-USASL2016066019

PATIENT
  Age: 84 Year
  Sex: Female

DRUGS (1)
  1. ENBREL [Suspect]
     Active Substance: ETANERCEPT
     Indication: RHEUMATOID ARTHRITIS
     Dosage: UNK UNK, QWK
     Route: 065
     Dates: start: 2012

REACTIONS (4)
  - Shoulder arthroplasty [Unknown]
  - Upper limb fracture [Unknown]
  - Fall [Unknown]
  - Underdose [Unknown]

NARRATIVE: CASE EVENT DATE: 20160424
